FAERS Safety Report 8779721 (Version 1)
Quarter: 2012Q4

REPORT INFORMATION
  Report Type: 
  Country: US (occurrence: US)
  Receive Date: 20120912
  Receipt Date: 20120912
  Transmission Date: 20130627
  Serious: No
  Sender: FDA-Public Use
  Company Number: US-TEVA-345275USA

PATIENT
  Sex: Female

DRUGS (3)
  1. QNASL [Suspect]
     Dates: start: 20120604, end: 20120604
  2. NAPROXEN [Concomitant]
  3. MECLIZINE [Concomitant]

REACTIONS (6)
  - Erythema [Recovered/Resolved]
  - Swelling face [Recovered/Resolved]
  - Pruritus [Unknown]
  - Flushing [Unknown]
  - Burning sensation [Unknown]
  - Pain [Unknown]
